FAERS Safety Report 6258119-9 (Version None)
Quarter: 2009Q3

REPORT INFORMATION
  Report Type: 
  Country: None (occurrence: None)
  Receive Date: 20090707
  Receipt Date: 20090624
  Transmission Date: 20100115
  Serious: Yes (Hospitalization)
  Sender: FDA-Public Use
  Company Number: AU-ASTRAZENECA-2009SE03297

PATIENT
  Age: 69 Year
  Sex: Male

DRUGS (9)
  1. NEXIUM [Suspect]
     Indication: BACTERIAL DISEASE CARRIER
     Route: 048
     Dates: start: 20070315, end: 20080226
  2. NAPROSYN [Suspect]
     Dates: end: 20080219
  3. AUGMENTIN '125' [Concomitant]
     Dosage: 2 DOSES UNSPECIFIED
     Dates: start: 20080222, end: 20080224
  4. FAMVIR [Concomitant]
     Indication: HERPES ZOSTER
     Dates: start: 20080222, end: 20080228
  5. PREDNISOLONE [Concomitant]
     Indication: PNEUMONIA
  6. SIMVASTATIN [Concomitant]
     Indication: METABOLIC DISORDER
  7. STAPHYLEX [Concomitant]
     Dates: start: 20080224, end: 20080228
  8. TEMAZEPAM [Concomitant]
  9. ZOVIRAX [Concomitant]
     Indication: HERPES ZOSTER
     Dosage: 4 DOSE UNSPECIFIED DAILY
     Route: 061
     Dates: start: 20080223

REACTIONS (3)
  - AORTIC ANEURYSM [None]
  - RENAL FAILURE ACUTE [None]
  - TUBULOINTERSTITIAL NEPHRITIS [None]
